FAERS Safety Report 20892148 (Version 1)
Quarter: 2022Q2

REPORT INFORMATION
  Report Type: Spontaneous
  Country: BR (occurrence: BR)
  Receive Date: 20220530
  Receipt Date: 20220530
  Transmission Date: 20220721
  Serious: Yes (Other)
  Sender: FDA-Public Use
  Company Number: BR-BoehringerIngelheim-2022-BI-173465

PATIENT
  Sex: Male

DRUGS (1)
  1. JARDIANCE [Suspect]
     Active Substance: EMPAGLIFLOZIN
     Indication: Diabetes mellitus
     Dosage: 25MG HALF TABLETS EVERY DAY

REACTIONS (5)
  - Necrosis [Unknown]
  - Wrong technique in product usage process [Unknown]
  - Penile swelling [Unknown]
  - Penile pain [Unknown]
  - Swelling [Unknown]
